FAERS Safety Report 9057375 (Version 1)
Quarter: 2013Q1

REPORT INFORMATION
  Report Type: Spontaneous
  Country: CH (occurrence: CH)
  Receive Date: 20130204
  Receipt Date: 20130204
  Transmission Date: 20140127
  Serious: Yes (Death)
  Sender: FDA-Public Use
  Company Number: PHHY2013CH009427

PATIENT
  Sex: 0

DRUGS (2)
  1. CICLOSPORIN [Suspect]
     Indication: MYCOSIS FUNGOIDES
     Route: 048
  2. STEROIDS NOS [Suspect]
     Route: 061

REACTIONS (2)
  - Death [Fatal]
  - Drug ineffective [Unknown]
